FAERS Safety Report 15637940 (Version 1)
Quarter: 2018Q4

REPORT INFORMATION
  Report Type: Spontaneous
  Country: US (occurrence: US)
  Receive Date: 20181120
  Receipt Date: 20181120
  Transmission Date: 20190205
  Serious: No
  Sender: FDA-Public Use
  Company Number: US-JNJFOC-20180614589

PATIENT
  Sex: Female
  Weight: 60 kg

DRUGS (16)
  1. BILBERRY [Concomitant]
     Active Substance: BILBERRY
  2. VALERIAN ROOT [Concomitant]
     Active Substance: VALERIAN
  3. CALCIUM SULFATE [Concomitant]
     Active Substance: CALCIUM SULFATE
  4. MULTIVITAMINS [Concomitant]
     Active Substance: VITAMINS
  5. IMBRUVICA [Concomitant]
     Active Substance: IBRUTINIB
     Indication: CHRONIC LYMPHOCYTIC LEUKAEMIA
     Route: 065
     Dates: start: 20180416, end: 2018
  6. POTASSIUM [Concomitant]
     Active Substance: POTASSIUM
  7. IMBRUVICA [Concomitant]
     Active Substance: IBRUTINIB
     Indication: CHRONIC LYMPHOCYTIC LEUKAEMIA
     Route: 065
     Dates: start: 20170201, end: 20180416
  8. BIFIDOBACTERIUM LACTIS [Concomitant]
     Active Substance: BIFIDOBACTERIUM ANIMALIS LACTIS
  9. PIPER METHYSTICUM [Concomitant]
  10. IMBRUVICA [Suspect]
     Active Substance: IBRUTINIB
     Indication: CHRONIC LYMPHOCYTIC LEUKAEMIA
     Route: 048
     Dates: start: 20180510, end: 2018
  11. VITAMIN D3 [Concomitant]
     Active Substance: CHOLECALCIFEROL
  12. IMBRUVICA [Suspect]
     Active Substance: IBRUTINIB
     Indication: CHRONIC LYMPHOCYTIC LEUKAEMIA
     Route: 048
     Dates: start: 2018, end: 2018
  13. GINKGO BILOBA [Concomitant]
     Active Substance: GINKGO
  14. MAGNESIUM [Concomitant]
     Active Substance: MAGNESIUM
  15. IMBRUVICA [Suspect]
     Active Substance: IBRUTINIB
     Indication: CHRONIC LYMPHOCYTIC LEUKAEMIA
     Route: 048
     Dates: start: 2018
  16. AMLODIPINE BESYLATE. [Concomitant]
     Active Substance: AMLODIPINE BESYLATE

REACTIONS (3)
  - White blood cell count increased [Unknown]
  - Adverse event [Unknown]
  - White blood cell count decreased [Unknown]
